FAERS Safety Report 13312808 (Version 1)
Quarter: 2017Q1

REPORT INFORMATION
  Report Type: Spontaneous
  Country: FR (occurrence: FR)
  Receive Date: 20170309
  Receipt Date: 20170309
  Transmission Date: 20170428
  Serious: Yes (Hospitalization, Other)
  Sender: FDA-Public Use
  Company Number: FR-GLAXOSMITHKLINE-FR2017GSK031367

PATIENT
  Age: 47 Year
  Sex: Male

DRUGS (16)
  1. LAMICTAL [Suspect]
     Active Substance: LAMOTRIGINE
     Indication: EPILEPSY
     Dosage: 25 MG, QD
  2. HALDOL [Concomitant]
     Active Substance: HALOPERIDOL
     Dosage: 5 MG, BID
  3. ZAMUDOL LP [Concomitant]
     Active Substance: TRAMADOL HYDROCHLORIDE
  4. NORMACOL [Concomitant]
     Active Substance: KARAYA GUM
  5. TEMESTA [Concomitant]
     Active Substance: LORAZEPAM
     Dosage: 1 MG, BID
  6. AUGMENTIN [Concomitant]
     Active Substance: AMOXICILLIN\CLAVULANATE POTASSIUM
     Dosage: 1 G, TID
  7. LOVENOX [Concomitant]
     Active Substance: ENOXAPARIN SODIUM
  8. MOVICOL [Concomitant]
     Active Substance: POLYETHYLENE GLYCOL 3350\POTASSIUM CHLORIDE\SODIUM BICARBONATE\SODIUM CHLORIDE
  9. UVEDOSE [Concomitant]
     Active Substance: CHOLECALCIFEROL
     Dosage: UNK
     Dates: start: 20170216
  10. EDUCTYL [Concomitant]
     Active Substance: POTASSIUM BITARTRATE\SODIUM BICARBONATE
     Dosage: UNK
     Dates: start: 20170213
  11. THERALENE [Concomitant]
     Active Substance: TRIMEPRAZINE
     Dosage: 30 UNK, 1D
  12. FLUOXETINE [Concomitant]
     Active Substance: FLUOXETINE HYDROCHLORIDE
     Dosage: 20 MG, QD
  13. PANTOPRAZOLE [Concomitant]
     Active Substance: PANTOPRAZOLE SODIUM
     Dosage: 20 MG, QD
  14. KARDEGIC [Concomitant]
     Active Substance: ASPIRIN LYSINE
     Dosage: 75 MG, QD
  15. PREVISCAN (FLUINDIONE) [Concomitant]
     Active Substance: FLUINDIONE
  16. OROZAMUDOL [Concomitant]
     Active Substance: TRAMADOL
     Dosage: UNK
     Dates: start: 20170212

REACTIONS (2)
  - Hypogammaglobulinaemia [Unknown]
  - Anaemia [Recovered/Resolved]

NARRATIVE: CASE EVENT DATE: 201702
